FAERS Safety Report 14133022 (Version 1)
Quarter: 2017Q4

REPORT INFORMATION
  Report Type: Spontaneous
  Country: US (occurrence: US)
  Receive Date: 20171026
  Receipt Date: 20171026
  Transmission Date: 20180321
  Serious: Yes (Disabling)
  Sender: FDA-Public Use
  Company Number: None

PATIENT
  Age: 55 Year
  Sex: Female
  Weight: 58.05 kg

DRUGS (7)
  1. MULTI VITAMIN [Concomitant]
     Active Substance: VITAMINS
  2. VITAMIN C [Concomitant]
     Active Substance: ASCORBIC ACID
  3. VID D [Concomitant]
  4. VITAMIN B [Concomitant]
     Active Substance: VITAMIN B
  5. SYNTHROID [Concomitant]
     Active Substance: LEVOTHYROXINE SODIUM
  6. CALCIUM [Concomitant]
     Active Substance: CALCIUM
  7. CIPROFLOXACIN. [Suspect]
     Active Substance: CIPROFLOXACIN
     Indication: URINARY TRACT INFECTION
     Route: 048
     Dates: start: 20170821, end: 20170828

REACTIONS (8)
  - Movement disorder [None]
  - Loss of personal independence in daily activities [None]
  - Frustration tolerance decreased [None]
  - Tendon disorder [None]
  - Anger [None]
  - Pain [None]
  - Pain in extremity [None]
  - Depressed mood [None]

NARRATIVE: CASE EVENT DATE: 20170828
